FAERS Safety Report 5392828-9 (Version None)
Quarter: 2007Q3

REPORT INFORMATION
  Report Type: 
  Country: None (occurrence: None)
  Receive Date: 20070720
  Receipt Date: 20070710
  Transmission Date: 20080115
  Serious: Yes (Death, Other)
  Sender: FDA-Public Use
  Company Number: JP-PFIZER INC-2007056722

PATIENT
  Age: 72 Year
  Sex: Female

DRUGS (16)
  1. ZYVOX [Suspect]
     Indication: SPONDYLITIS
     Dosage: DAILY DOSE:1200MG
     Route: 042
     Dates: start: 20070326, end: 20070706
  2. ZYVOX [Suspect]
     Indication: SPONDYLITIS
     Dosage: DAILY DOSE:1200MG
     Route: 048
     Dates: start: 20070404
  3. DIFLUCAN [Concomitant]
     Route: 048
  4. LANSOPRAZOLE [Concomitant]
     Route: 048
  5. PREDONINE [Concomitant]
     Route: 048
  6. LIPITOR [Concomitant]
     Route: 048
  7. BEZATOL - SLOW RELEASE [Concomitant]
     Route: 048
  8. FERROMIA [Concomitant]
     Route: 048
  9. URSO 250 [Concomitant]
     Route: 048
  10. MAGNESIUM OXIDE [Concomitant]
     Route: 048
  11. CALONAL [Concomitant]
     Route: 048
  12. VEEN D [Concomitant]
     Route: 042
  13. SOLDEM 3A [Concomitant]
     Route: 042
  14. FAMOTIDINE [Concomitant]
  15. HUMULIN 70/30 [Concomitant]
  16. PREDONINE [Concomitant]

REACTIONS (5)
  - ANOREXIA [None]
  - BONE MARROW FAILURE [None]
  - GASTROINTESTINAL HAEMORRHAGE [None]
  - HYPONATRAEMIA [None]
  - ILEUS PARALYTIC [None]
